FAERS Safety Report 21736718 (Version 1)
Quarter: 2022Q4

REPORT INFORMATION
  Report Type: Spontaneous
  Country: CN (occurrence: CN)
  Receive Date: 20221216
  Receipt Date: 20221216
  Transmission Date: 20230113
  Serious: Yes (Hospitalization)
  Sender: FDA-Public Use
  Company Number: CN-STRIDES ARCOLAB LIMITED-2022SP016798

PATIENT
  Age: 45 Year
  Sex: Male

DRUGS (2)
  1. CYCLOSPORINE [Suspect]
     Active Substance: CYCLOSPORINE
     Indication: Aplastic anaemia
     Dosage: 75 MILLIGRAM
     Route: 065
  2. STANOZOLOL [Suspect]
     Active Substance: STANOZOLOL
     Indication: Aplastic anaemia
     Dosage: 2 MILLIGRAM, TID
     Route: 065

REACTIONS (5)
  - Arteriosclerosis [Recovered/Resolved]
  - Thrombosis [Recovered/Resolved]
  - Dyslipidaemia [Recovered/Resolved]
  - Acute myocardial infarction [Recovered/Resolved]
  - Drug ineffective for unapproved indication [Unknown]
